FAERS Safety Report 7264714-0 (Version None)
Quarter: 2011Q1

REPORT INFORMATION
  Report Type: 
  Country: None (occurrence: None)
  Receive Date: 20110131
  Receipt Date: 20110124
  Transmission Date: 20110831
  Serious: Yes (Other)
  Sender: FDA-Public Use
  Company Number: DE-JNJFOC-20110106221

PATIENT
  Sex: Male

DRUGS (6)
  1. DOMINAL [Suspect]
     Indication: ILL-DEFINED DISORDER
     Route: 048
     Dates: start: 20110124, end: 20110124
  2. CONCERTA [Suspect]
     Indication: ILL-DEFINED DISORDER
     Route: 048
     Dates: start: 20110124, end: 20110124
  3. METHYLPHENIDATE [Suspect]
     Indication: ILL-DEFINED DISORDER
     Route: 048
     Dates: start: 20110124, end: 20110124
  4. FLUOXETINE HCL [Suspect]
     Indication: ILL-DEFINED DISORDER
     Route: 048
     Dates: start: 20110124, end: 20110124
  5. TEMAZEPAM [Suspect]
     Indication: ILL-DEFINED DISORDER
     Route: 048
     Dates: start: 20110124, end: 20110124
  6. ALCOHOL [Suspect]
     Indication: ILL-DEFINED DISORDER
     Route: 048
     Dates: start: 20110124, end: 20110124

REACTIONS (2)
  - MULTIPLE DRUG OVERDOSE [None]
  - SUICIDE ATTEMPT [None]
